FAERS Safety Report 24179520 (Version 1)
Quarter: 2024Q3

REPORT INFORMATION
  Report Type: Spontaneous
  Country: US (occurrence: US)
  Receive Date: 20240806
  Receipt Date: 20240806
  Transmission Date: 20241016
  Serious: No
  Sender: PFIZER
  Company Number: US-PFIZER INC-202400228423

PATIENT

DRUGS (1)
  1. NURTEC ODT [Suspect]
     Active Substance: RIMEGEPANT SULFATE
     Dosage: EVERY OTHER DAY

REACTIONS (4)
  - Rash [Unknown]
  - Hyperhidrosis [Unknown]
  - Pruritus [Unknown]
  - Urticaria [Unknown]
